FAERS Safety Report 6988914-X (Version None)
Quarter: 2010Q3

REPORT INFORMATION
  Report Type: 
  Country: None (occurrence: None)
  Receive Date: 20100916
  Receipt Date: 20090727
  Transmission Date: 20110219
  Serious: Yes (Death, Life-Threatening, Hospitalization)
  Sender: FDA-Public Use
  Company Number: CL-PFIZER INC-2009239595

PATIENT
  Sex: Male

DRUGS (2)
  1. LYRICA [Suspect]
     Dosage: UNK
     Route: 048
     Dates: start: 20090601
  2. ACICLOVIR [Concomitant]
     Indication: HERPES VIRUS INFECTION

REACTIONS (1)
  - TOXIC EPIDERMAL NECROLYSIS [None]
